FAERS Safety Report 8958136 (Version 3)
Quarter: 2013Q1

REPORT INFORMATION
  Report Type: Spontaneous
  Country: FR (occurrence: FR)
  Receive Date: 20121211
  Receipt Date: 20130107
  Transmission Date: 20140127
  Serious: Yes (Hospitalization, Other)
  Sender: FDA-Public Use
  Company Number: FR-JNJFOC-20121115169

PATIENT
  Age: 57 Year
  Sex: Female

DRUGS (23)
  1. IMODIUM [Suspect]
     Indication: DIARRHOEA
     Route: 065
  2. MOTILIUM [Suspect]
     Indication: PRODUCT USED FOR UNKNOWN INDICATION
     Route: 065
  3. EPREX [Suspect]
     Indication: PRODUCT USED FOR UNKNOWN INDICATION
     Route: 065
  4. VELCADE [Suspect]
     Indication: PLASMA CELL LEUKAEMIA
     Dosage: AT DAY 1, DAY 4, DAY 8 AND DAY 11
     Route: 042
     Dates: end: 20121103
  5. VELCADE [Suspect]
     Indication: PLASMA CELL LEUKAEMIA
     Dosage: AT DAY 1, DAY 4, DAY 8 AND DAY 11
     Route: 042
     Dates: end: 20121103
  6. VELCADE [Suspect]
     Indication: PLASMA CELL LEUKAEMIA
     Route: 042
     Dates: start: 20121126
  7. ENDOXAN [Suspect]
     Indication: PLASMA CELL LEUKAEMIA
     Dosage: AT DAY 1 AND DAY 8
     Route: 048
     Dates: end: 20121102
  8. ENDOXAN [Suspect]
     Indication: PLASMA CELL LEUKAEMIA
     Route: 048
     Dates: start: 20121126
  9. DEXAMETHASONE [Concomitant]
     Indication: PLASMA CELL LEUKAEMIA
     Dosage: FROM DAY 1 TO DAY 4, THEN FROM DAY 9 TO DAY 12
     Route: 042
  10. DEXAMETHASONE [Concomitant]
     Indication: PLASMA CELL LEUKAEMIA
     Dosage: FROM DAY 1 TO DAY 4, THEN FROM DAY 8 TO DAY 11.
     Route: 042
  11. DEXAMETHASONE [Concomitant]
     Indication: PLASMA CELL LEUKAEMIA
     Route: 042
     Dates: start: 20121126
  12. DOXORUBICINE [Concomitant]
     Indication: PLASMA CELL LEUKAEMIA
     Dosage: FROM DAY 1 TO DAY 4, THEN FROM DAY 9 TO DAY 12
     Route: 065
  13. ZELITREX [Concomitant]
     Indication: PRODUCT USED FOR UNKNOWN INDICATION
     Dosage: FROM DAY 1 TO DAY 4, THEN FROM DAY 9 TO DAY 12
     Route: 065
  14. INEXIUM [Concomitant]
     Indication: PRODUCT USED FOR UNKNOWN INDICATION
     Dosage: FROM DAY 1 TO DAY 4, THEN FROM DAY 9 TO DAY 12
     Route: 065
  15. STILNOX [Concomitant]
     Indication: PRODUCT USED FOR UNKNOWN INDICATION
     Dosage: FROM DAY 1 TO DAY 4, THEN FROM DAY 9 TO DAY 12
     Route: 065
  16. LEXOMIL [Concomitant]
     Indication: PRODUCT USED FOR UNKNOWN INDICATION
     Dosage: FROM DAY 1 TO DAY 4, THEN FROM DAY 9 TO DAY 12
     Route: 065
  17. TOPALGIC [Concomitant]
     Indication: PRODUCT USED FOR UNKNOWN INDICATION
     Dosage: FROM DAY 1 TO DAY 4, THEN FROM DAY 9 TO DAY 12
     Route: 065
  18. AUGMENTIN [Concomitant]
     Indication: PRODUCT USED FOR UNKNOWN INDICATION
     Dosage: FROM DAY 1 TO DAY 4, THEN FROM DAY 9 TO DAY 12
     Route: 065
  19. SMECTA [Concomitant]
     Indication: PRODUCT USED FOR UNKNOWN INDICATION
     Dosage: FROM DAY 1 TO DAY 4, THEN FROM DAY 9 TO DAY 12
     Route: 065
  20. ZOPHREN [Concomitant]
     Indication: PRODUCT USED FOR UNKNOWN INDICATION
     Dosage: FROM DAY 1 TO DAY 4, THEN FROM DAY 9 TO DAY 12
     Route: 065
  21. LASILIX [Concomitant]
     Indication: PRODUCT USED FOR UNKNOWN INDICATION
     Dosage: FROM DAY 1 TO DAY 4, THEN FROM DAY 9 TO DAY 12
     Route: 065
  22. TIORFAN [Concomitant]
     Indication: PRODUCT USED FOR UNKNOWN INDICATION
     Dosage: FROM DAY 1 TO DAY 4, THEN FROM DAY 9 TO DAY 12
     Route: 065
  23. VFEND [Concomitant]
     Indication: PRODUCT USED FOR UNKNOWN INDICATION
     Dosage: FROM DAY 1 TO DAY 4, THEN FROM DAY 9 TO DAY 12
     Route: 065

REACTIONS (5)
  - Septic shock [Recovered/Resolved]
  - Pancytopenia [Recovered/Resolved]
  - Diarrhoea [Recovered/Resolved]
  - Dehydration [Recovered/Resolved]
  - Hypokalaemia [Recovered/Resolved]
